FAERS Safety Report 12866606 (Version 2)
Quarter: 2016Q4

REPORT INFORMATION
  Report Type: Report from Study
  Country: IT (occurrence: IT)
  Receive Date: 20161020
  Receipt Date: 20161219
  Transmission Date: 20170207
  Serious: Yes (Hospitalization)
  Sender: FDA-Public Use
  Company Number: IT-CELGENEUS-ITA-2016102555

PATIENT
  Age: 71 Year
  Sex: Female
  Weight: 55 kg

DRUGS (20)
  1. LOBIVON [Concomitant]
     Active Substance: NEBIVOLOL HYDROCHLORIDE
     Indication: MITRAL VALVE INCOMPETENCE
     Dosage: 3.75 MG
     Route: 065
     Dates: start: 1990
  2. ARANESP [Concomitant]
     Active Substance: DARBEPOETIN ALFA
     Indication: ANAEMIA
     Dosage: 500 MCG
     Route: 065
     Dates: start: 20160603, end: 20160630
  3. GEMCITABINE [Suspect]
     Active Substance: GEMCITABINE\GEMCITABINE HYDROCHLORIDE
     Indication: ADENOCARCINOMA PANCREAS
     Dosage: 1000 MG/M2
     Route: 041
     Dates: start: 20160225, end: 20160310
  4. CLEXANE [Concomitant]
     Active Substance: ENOXAPARIN SODIUM
     Indication: THROMBOPHLEBITIS
     Dosage: 4000 IU
     Route: 065
     Dates: start: 20160408, end: 20160715
  5. CREON [Concomitant]
     Active Substance: PANCRELIPASE AMYLASE\PANCRELIPASE LIPASE\PANCRELIPASE PROTEASE
     Indication: PANCREATIC INSUFFICIENCY
     Dosage: 3000 IU
     Route: 065
     Dates: start: 20160506
  6. CREON [Concomitant]
     Active Substance: PANCRELIPASE AMYLASE\PANCRELIPASE LIPASE\PANCRELIPASE PROTEASE
     Indication: WEIGHT DECREASED
     Dosage: 50000 IU
     Route: 065
     Dates: start: 20160506
  7. ABRAXANE [Suspect]
     Active Substance: PACLITAXEL
     Dosage: 100 MG/M2
     Route: 041
     Dates: start: 20160707
  8. ZANTAC [Concomitant]
     Active Substance: RANITIDINE HYDROCHLORIDE
     Indication: PREMEDICATION
     Dosage: VIAL
     Route: 065
     Dates: start: 20160225, end: 20160714
  9. ABRAXANE [Suspect]
     Active Substance: PACLITAXEL
     Indication: ADENOCARCINOMA PANCREAS
     Dosage: 125 MG/M2
     Route: 041
     Dates: start: 20160225, end: 20160310
  10. GEMCITABINE [Suspect]
     Active Substance: GEMCITABINE\GEMCITABINE HYDROCHLORIDE
     Dosage: 800 MG/M2
     Route: 041
     Dates: start: 20160707, end: 20160714
  11. PRAZEN [Concomitant]
     Indication: DEPRESSION
     Dosage: 5 OTHER
     Route: 065
     Dates: start: 20160505
  12. DAFLON [Concomitant]
     Active Substance: DIOSMIN\HESPERIDIN
     Indication: LYMPHOEDEMA
     Dosage: 500 MG
     Route: 065
     Dates: start: 20160610
  13. SOLDESAM [Concomitant]
     Active Substance: DEXAMETHASONE
     Indication: PREMEDICATION
     Dosage: 8 MG
     Route: 065
     Dates: start: 20160225, end: 20160714
  14. CRIOVEN [Concomitant]
     Indication: PROPHYLAXIS
  15. MYELOSTIM [Concomitant]
     Indication: PROPHYLAXIS
     Dosage: 33.6 IU
     Route: 065
     Dates: start: 20160327, end: 20160626
  16. FERLIXIT [Concomitant]
     Active Substance: SODIUM FERRIC GLUCONATE COMPLEX
     Indication: ANAEMIA
     Dosage: 10 ML
     Route: 065
     Dates: start: 20160603, end: 20160603
  17. ZOFRAN [Concomitant]
     Active Substance: ONDANSETRON HYDROCHLORIDE
     Indication: PREMEDICATION
     Dosage: VIAL
     Route: 065
     Dates: start: 20160225, end: 20160714
  18. CRIOVEN [Concomitant]
     Indication: THROMBOPHLEBITIS
     Dosage: 1 TABLET
     Route: 065
     Dates: start: 20160412, end: 20160606
  19. CIPRALEX [Concomitant]
     Active Substance: ESCITALOPRAM OXALATE
     Indication: DEPRESSION
     Dosage: 10 OTHER
     Route: 065
     Dates: start: 20160505
  20. FERLIXIT [Concomitant]
     Active Substance: SODIUM FERRIC GLUCONATE COMPLEX
     Dosage: 10 ML
     Route: 065
     Dates: start: 20160623, end: 20160623

REACTIONS (2)
  - Oedema peripheral [Recovered/Resolved]
  - Polyserositis [Not Recovered/Not Resolved]

NARRATIVE: CASE EVENT DATE: 20160616
